FAERS Safety Report 6790271-9 (Version None)
Quarter: 2010Q2

REPORT INFORMATION
  Report Type: 
  Country: None (occurrence: None)
  Receive Date: 20100624
  Receipt Date: 20100617
  Transmission Date: 20101027
  Serious: Yes (Other)
  Sender: FDA-Public Use
  Company Number: HR-ASTRAZENECA-2010SE28454

PATIENT
  Age: 10239 Day
  Sex: Female
  Weight: 50 kg

DRUGS (2)
  1. ZOMIG-ZMT [Suspect]
     Indication: MIGRAINE WITH AURA
     Route: 048
     Dates: start: 20100322
  2. VELAFAX [Concomitant]
     Indication: DEPRESSION
     Route: 048
     Dates: start: 20100111

REACTIONS (1)
  - OROMANDIBULAR DYSTONIA [None]
